FAERS Safety Report 9931918 (Version 1)
Quarter: 2014Q1

REPORT INFORMATION
  Report Type: Spontaneous
  Country: FR (occurrence: FR)
  Receive Date: 20140228
  Receipt Date: 20140228
  Transmission Date: 20141002
  Serious: Yes (Hospitalization, Other)
  Sender: FDA-Public Use
  Company Number: FR-JNJFOC-20140215579

PATIENT
  Age: 75 Year
  Sex: Male

DRUGS (14)
  1. REMICADE [Suspect]
     Indication: SPONDYLOARTHROPATHY
     Route: 042
     Dates: start: 201007
  2. REMICADE [Suspect]
     Indication: SPONDYLOARTHROPATHY
     Route: 042
     Dates: start: 201201, end: 20140124
  3. METHOTREXATE [Concomitant]
     Route: 065
  4. SPECIAFOLDINE [Concomitant]
     Route: 065
  5. MOPRAL [Concomitant]
     Route: 065
  6. AMLOR [Concomitant]
     Route: 065
  7. KARDEGIC [Concomitant]
     Route: 065
  8. TRAMADOL [Concomitant]
     Route: 065
  9. CACIT D3 [Concomitant]
     Route: 065
  10. COVERSYL [Concomitant]
     Route: 065
  11. UVEDOSE [Concomitant]
     Dosage: 1 VIAL EVERY 3 MONTHS
     Route: 065
  12. LODOZ [Concomitant]
     Dosage: 1 VIAL EVERY 3 MONTHS
     Route: 065
  13. BISOPROLOL [Concomitant]
     Route: 065
  14. PARACETAMOL [Concomitant]
     Route: 065

REACTIONS (5)
  - Malaise [Recovered/Resolved]
  - Loss of consciousness [Recovered/Resolved]
  - Pyrexia [Recovered/Resolved]
  - Infusion related reaction [Recovered/Resolved]
  - Drug ineffective [Unknown]
